FAERS Safety Report 8922313 (Version 3)
Quarter: 2012Q4

REPORT INFORMATION
  Report Type: 
  Country: TM (occurrence: TM)
  Receive Date: 20121123
  Receipt Date: 20121203
  Transmission Date: 20130627
  Serious: Yes (Hospitalization, Other)
  Sender: FDA-Public Use
  Company Number: TM-ABBOTT-12P-266-1011730-00

PATIENT
  Age: 65 Year
  Sex: Female

DRUGS (6)
  1. CREON [Suspect]
     Indication: PANCREATITIS CHRONIC
     Route: 048
     Dates: start: 20121112
  2. HEPTRAL [Suspect]
     Indication: CHOLESTASIS
     Route: 042
     Dates: start: 20121112
  3. ASPIRIN [Concomitant]
     Indication: CARDIAC DISORDER
  4. CONCOR [Concomitant]
     Indication: CARDIAC DISORDER
  5. MONOSAN [Concomitant]
     Indication: CARDIAC DISORDER
  6. NORMODIPINE [Concomitant]
     Indication: CARDIAC DISORDER

REACTIONS (8)
  - Aspartate aminotransferase increased [Recovered/Resolved]
  - Abdominal pain upper [Recovered/Resolved]
  - Vomiting [Recovered/Resolved]
  - Alanine aminotransferase increased [Recovered/Resolved]
  - Gamma-glutamyltransferase increased [Recovered/Resolved]
  - Amylase increased [Recovered/Resolved]
  - Amylase increased [Recovered/Resolved]
  - Blood bilirubin increased [Recovered/Resolved]
